FAERS Safety Report 16028855 (Version 4)
Quarter: 2019Q3

REPORT INFORMATION
  Report Type: Spontaneous
  Country: US (occurrence: US)
  Receive Date: 20190304
  Receipt Date: 20190726
  Transmission Date: 20191004
  Serious: Yes (Other)
  Sender: FDA-Public Use
  Company Number: US-JNJFOC-20190221156

PATIENT
  Sex: Male
  Weight: 63.56 kg

DRUGS (5)
  1. RISPERDAL [Suspect]
     Active Substance: RISPERIDONE
     Indication: SCHIZOAFFECTIVE DISORDER BIPOLAR TYPE
     Route: 048
     Dates: start: 20090820
  2. RISPERDAL [Suspect]
     Active Substance: RISPERIDONE
     Route: 048
  3. RISPERDAL [Suspect]
     Active Substance: RISPERIDONE
     Route: 048
     Dates: end: 2009
  4. RISPERDAL [Suspect]
     Active Substance: RISPERIDONE
     Route: 048
  5. RISPERDAL [Suspect]
     Active Substance: RISPERIDONE
     Route: 048
     Dates: end: 201101

REACTIONS (12)
  - Helicobacter gastritis [Unknown]
  - Palpitations [Unknown]
  - Muscle spasms [Unknown]
  - Drug ineffective [Unknown]
  - Mania [Unknown]
  - Abnormal loss of weight [Unknown]
  - Amnesia [Unknown]
  - Thirst [Unknown]
  - Urine output increased [Unknown]
  - Haemoglobin decreased [Unknown]
  - Syncope [Unknown]
  - Serum serotonin decreased [Unknown]

NARRATIVE: CASE EVENT DATE: 2011
